FAERS Safety Report 9137488 (Version 2)
Quarter: 2014Q1

REPORT INFORMATION
  Report Type: Spontaneous
  Country: US (occurrence: US)
  Receive Date: 20130219
  Receipt Date: 20140213
  Transmission Date: 20141002
  Serious: No
  Sender: FDA-Public Use
  Company Number: US-BRISTOL-MYERS SQUIBB COMPANY-17145939

PATIENT
  Age: 58 Year
  Sex: Female

DRUGS (1)
  1. ORENCIA [Suspect]
     Dosage: LAST INF ON OCT12,30NOV2012
     Route: 042
     Dates: start: 201206

REACTIONS (3)
  - Malaise [Unknown]
  - Herpes zoster [Unknown]
  - Macule [Unknown]
